FAERS Safety Report 8520141-7 (Version None)
Quarter: 2012Q3

REPORT INFORMATION
  Report Type: 
  Country: None (occurrence: None)
  Receive Date: 20120719
  Receipt Date: 20120709
  Transmission Date: 20120928
  Serious: Yes (Hospitalization)
  Sender: FDA-Public Use
  Company Number: ES-ACCORD-014074

PATIENT
  Age: 31 Year
  Sex: Male

DRUGS (2)
  1. LEVETIRACETAM [Suspect]
     Route: 048
  2. DEXAMETHASONE [Concomitant]
     Dosage: INITIALLY 12 MG DAILY, TAPERED TO 2MG/DAY, REINITIATED 6 MG/DAILY ON DISCHARGE 4 MG DAILY FOR 2 DAYS

REACTIONS (1)
  - DRUG RASH WITH EOSINOPHILIA AND SYSTEMIC SYMPTOMS [None]
